FAERS Safety Report 18375667 (Version 1)
Quarter: 2020Q4

REPORT INFORMATION
  Report Type: Spontaneous
  Country: CH (occurrence: CH)
  Receive Date: 20201013
  Receipt Date: 20201013
  Transmission Date: 20210114
  Serious: Yes (Other)
  Sender: FDA-Public Use
  Company Number: CH-ROCHE-2691045

PATIENT
  Age: 60 Year
  Sex: Male

DRUGS (11)
  1. AVASTIN [Suspect]
     Active Substance: BEVACIZUMAB
     Route: 065
     Dates: start: 20190807
  2. CARBOPLATINE [Suspect]
     Active Substance: CARBOPLATIN
     Indication: PRODUCT USED FOR UNKNOWN INDICATION
     Dosage: CYCLICAL
     Route: 065
     Dates: start: 20190319, end: 20190406
  3. PEMETREXED. [Suspect]
     Active Substance: PEMETREXED
     Indication: PRODUCT USED FOR UNKNOWN INDICATION
     Dosage: CYCLICAL
     Route: 065
     Dates: start: 20190319, end: 20190406
  4. AVASTIN [Suspect]
     Active Substance: BEVACIZUMAB
     Indication: PRODUCT USED FOR UNKNOWN INDICATION
     Dosage: CYCLICAL
     Route: 065
     Dates: start: 20190319, end: 20190406
  5. ATORVASTATINE [Concomitant]
     Active Substance: ATORVASTATIN
  6. PROSTA URGENIN [Suspect]
     Active Substance: SERENOA REPENS WHOLE
     Indication: PRODUCT USED FOR UNKNOWN INDICATION
     Route: 065
     Dates: start: 201812
  7. CARBOPLATINE [Suspect]
     Active Substance: CARBOPLATIN
     Route: 065
     Dates: start: 20190618, end: 20190618
  8. MELATONIN [Suspect]
     Active Substance: MELATONIN
     Indication: PRODUCT USED FOR UNKNOWN INDICATION
     Route: 048
     Dates: start: 2019, end: 20190522
  9. TEMESTA [Concomitant]
     Dosage: AS NECESSARY
  10. CARBOPLATINE [Suspect]
     Active Substance: CARBOPLATIN
     Route: 065
     Dates: start: 20190529, end: 20190529
  11. CARBOPLATINE [Suspect]
     Active Substance: CARBOPLATIN
     Route: 065
     Dates: start: 20190709, end: 20190709

REACTIONS (1)
  - Acute kidney injury [Recovered/Resolved]

NARRATIVE: CASE EVENT DATE: 20190520
